FAERS Safety Report 9185780 (Version 1)
Quarter: 2013Q1

REPORT INFORMATION
  Report Type: Spontaneous
  Country: US (occurrence: US)
  Receive Date: 20130325
  Receipt Date: 20130325
  Transmission Date: 20140127
  Serious: Yes (Hospitalization)
  Sender: FDA-Public Use
  Company Number: US-ABBOTT-13P-163-1063797-00

PATIENT
  Age: 72 Year
  Sex: Male
  Weight: 124.85 kg

DRUGS (2)
  1. ANDROGEL [Suspect]
     Indication: BLOOD TESTOSTERONE DECREASED
     Dosage: TWO PUMP ACTUATIONS
     Dates: start: 201208
  2. ANDROGEL [Suspect]
     Indication: BLOOD TESTOSTERONE DECREASED
     Dosage: TWO PUMP ACTUATIONS PER DAY
     Dates: start: 201206, end: 201208

REACTIONS (6)
  - Oxygen saturation decreased [Recovered/Resolved]
  - Sleep apnoea syndrome [Not Recovered/Not Resolved]
  - Presyncope [Recovered/Resolved]
  - Asthenia [Recovered/Resolved]
  - Disorientation [Recovered/Resolved]
  - Blood testosterone decreased [Not Recovered/Not Resolved]
